FAERS Safety Report 6158514-2 (Version None)
Quarter: 2009Q2

REPORT INFORMATION
  Report Type: 
  Country: None (occurrence: None)
  Receive Date: 20090417
  Receipt Date: 20090410
  Transmission Date: 20091009
  Serious: Yes (Other)
  Sender: FDA-Public Use
  Company Number: PHHO2009IT01583

PATIENT
  Sex: Female
  Weight: 57 kg

DRUGS (5)
  1. TASIGNA [Suspect]
     Dosage: 400MG DAILY
     Route: 048
     Dates: start: 20080506
  2. CLEXANE [Concomitant]
     Indication: THROMBOSIS PROPHYLAXIS
     Dosage: UNK
  3. FOLINA [Concomitant]
     Indication: ANAEMIA PROPHYLAXIS
     Dosage: UNK
  4. MINIAS [Concomitant]
     Indication: PROPHYLAXIS
     Dosage: UNK
  5. MOTILEX [Concomitant]
     Indication: ABDOMINAL PAIN UPPER

REACTIONS (2)
  - ARTERIOSCLEROSIS [None]
  - PAIN [None]
